FAERS Safety Report 6636935-9 (Version None)
Quarter: 2010Q1

REPORT INFORMATION
  Report Type: 
  Country: None (occurrence: None)
  Receive Date: 20100316
  Receipt Date: 20100302
  Transmission Date: 20100710
  Serious: Yes (Other)
  Sender: FDA-Public Use
  Company Number: US-ELI_LILLY_AND_COMPANY-US201003001942

PATIENT
  Sex: Male

DRUGS (1)
  1. EFFIENT [Suspect]
     Dosage: 60 MG, DAILY (1/D)
     Dates: start: 20100120, end: 20100121

REACTIONS (3)
  - HAEMOPTYSIS [None]
  - SUBDURAL HAEMATOMA [None]
  - ULCER [None]
